FAERS Safety Report 17085363 (Version 1)
Quarter: 2019Q4

REPORT INFORMATION
  Report Type: Spontaneous
  Country: CA (occurrence: CA)
  Receive Date: 20191128
  Receipt Date: 20191128
  Transmission Date: 20200122
  Serious: Yes (Other)
  Sender: FDA-Public Use
  Company Number: CA-AUROBINDO-AUR-APL-2019-075033

PATIENT
  Age: 69 Year
  Sex: Female

DRUGS (4)
  1. GABAPENTIN CAPSULES [Suspect]
     Active Substance: GABAPENTIN
     Indication: NEURALGIA
     Dosage: 200.0 MILLIGRAM, ONCE A DAY
     Route: 048
  2. GABAPENTIN CAPSULES [Suspect]
     Active Substance: GABAPENTIN
     Dosage: 100.0 MILLIGRAM, 3 TIMES A DAY
     Route: 048
  3. BACLOFEN. [Concomitant]
     Active Substance: BACLOFEN
     Indication: PRODUCT USED FOR UNKNOWN INDICATION
     Dosage: UNK
     Route: 065
  4. RANITIDINE. [Concomitant]
     Active Substance: RANITIDINE
     Indication: PRODUCT USED FOR UNKNOWN INDICATION
     Dosage: UNK
     Route: 065

REACTIONS (2)
  - Hallucination, visual [Recovered/Resolved]
  - Somnolence [Recovered/Resolved]
